FAERS Safety Report 4295274-4 (Version None)
Quarter: 2004Q1

REPORT INFORMATION
  Report Type: 
  Country: None (occurrence: None)
  Receive Date: 20040216
  Receipt Date: 20030508
  Transmission Date: 20041129
  Serious: Yes (Hospitalization)
  Sender: FDA-Public Use
  Company Number: US-GLAXOSMITHKLINE-A0407807A

PATIENT
  Age: 52 Year
  Sex: Female

DRUGS (1)
  1. LAMICTAL [Suspect]
     Dosage: 200MG TWICE PER DAY
     Route: 048
     Dates: start: 20021201, end: 20030201

REACTIONS (5)
  - GINGIVAL DISORDER [None]
  - GLOSSITIS [None]
  - RASH [None]
  - RASH GENERALISED [None]
  - STEVENS-JOHNSON SYNDROME [None]
